FAERS Safety Report 10908894 (Version 2)
Quarter: 2015Q1

REPORT INFORMATION
  Report Type: Spontaneous
  Country: BR (occurrence: BR)
  Receive Date: 20150312
  Receipt Date: 20150317
  Transmission Date: 20150721
  Serious: Yes (Hospitalization, Other)
  Sender: FDA-Public Use
  Company Number: BR-ELI_LILLY_AND_COMPANY-BR201503001438

PATIENT
  Age: 66 Year
  Sex: Male
  Weight: 67 kg

DRUGS (1)
  1. RAMUCIRUMAB [Suspect]
     Active Substance: RAMUCIRUMAB
     Indication: GASTRIC CANCER
     Dosage: 500 MG, 2/M
     Route: 042
     Dates: start: 20141217

REACTIONS (3)
  - Fall [Unknown]
  - Pulmonary embolism [Unknown]
  - Rib fracture [Unknown]

NARRATIVE: CASE EVENT DATE: 20150217
